FAERS Safety Report 8903230 (Version 1)
Quarter: 2012Q4

REPORT INFORMATION
  Report Type: 
  Country: SE (occurrence: SE)
  Receive Date: 20121113
  Receipt Date: 20121113
  Transmission Date: 20130627
  Serious: Yes (Hospitalization)
  Sender: FDA-Public Use
  Company Number: SE-PFIZER INC-2012278469

PATIENT
  Age: 23 Year
  Sex: Female
  Weight: 76.4 kg

DRUGS (6)
  1. GENOTROPIN [Suspect]
     Dosage: 1.4 mg, 1x/day, 7 injections/week
     Route: 058
     Dates: start: 20101025
  2. DESOGESTREL+ETINYLESTRADIOL T [Concomitant]
     Indication: HYPOGONADISM
     Dosage: UNK
     Dates: start: 20030601
  3. HYDROCORTONE [Concomitant]
     Indication: ADRENAL INSUFFICIENCY
     Dosage: UNK
     Dates: start: 20030601
  4. LEVOTHYROXINE [Concomitant]
     Indication: HYPOTHYROIDISM
     Dosage: UNK
     Dates: start: 20030601
  5. DUREFERON [Concomitant]
     Indication: ANEMIA
     Dosage: UNK
     Dates: start: 20090911
  6. FOLACIN [Concomitant]
     Indication: ANEMIA
     Dosage: UNK
     Dates: start: 20090911

REACTIONS (1)
  - Breast disorder [Unknown]
